FAERS Safety Report 5725931-1 (Version None)
Quarter: 2008Q2

REPORT INFORMATION
  Report Type: 
  Country: None (occurrence: None)
  Receive Date: 20080429
  Receipt Date: 20080414
  Transmission Date: 20081010
  Serious: Yes (Death, Hospitalization, Other)
  Sender: FDA-Public Use
  Company Number: 47476

PATIENT
  Age: 85 Year
  Sex: Male

DRUGS (1)
  1. AZATHIOPRINE SODIUM [Suspect]
     Indication: PULMONARY FIBROSIS
     Dosage: 100MG/DAILY

REACTIONS (4)
  - ACUTE RESPIRATORY FAILURE [None]
  - PANCYTOPENIA [None]
  - PULMONARY ALVEOLAR HAEMORRHAGE [None]
  - THROMBOCYTOPENIA [None]
